FAERS Safety Report 4343829-0 (Version None)
Quarter: 2004Q2

REPORT INFORMATION
  Report Type: 
  Country: None (occurrence: None)
  Receive Date: 20040419
  Receipt Date: 20040405
  Transmission Date: 20050107
  Serious: Yes (Death, Hospitalization)
  Sender: FDA-Public Use
  Company Number: US-JNJFOC-20040102948

PATIENT
  Age: 74 Year
  Sex: Male
  Weight: 74.3899 kg

DRUGS (7)
  1. REMICADE [Suspect]
     Indication: RHEUMATOID ARTHRITIS
     Dosage: 640 MG, INTRAVENOUS
     Route: 042
     Dates: start: 20031222, end: 20031222
  2. SOLU-MEDROL [Concomitant]
  3. ALLEGRA [Concomitant]
  4. TYLENOL [Concomitant]
  5. METHOTREXATE [Concomitant]
  6. METOPROLOL TARTRATE [Concomitant]
  7. TERAZOSIN (TERAZOSIN) [Concomitant]

REACTIONS (1)
  - CARCINOMA [None]
